FAERS Safety Report 12561898 (Version 1)
Quarter: 2016Q3

REPORT INFORMATION
  Report Type: Spontaneous
  Country: US (occurrence: US)
  Receive Date: 20160715
  Receipt Date: 20160715
  Transmission Date: 20161109
  Serious: Yes (Other)
  Sender: FDA-Public Use
  Company Number: US-MEDA-2016070046

PATIENT
  Age: 46 Year
  Sex: Female

DRUGS (3)
  1. DEMADEX [Suspect]
     Active Substance: TORSEMIDE
     Indication: FLUID RETENTION
  2. POTASSIUM [Concomitant]
     Active Substance: POTASSIUM
     Indication: FLUID RETENTION
  3. DEMADEX [Suspect]
     Active Substance: TORSEMIDE
     Indication: FLUID RETENTION

REACTIONS (4)
  - Malaise [Unknown]
  - Cardiac failure congestive [Unknown]
  - Cushing^s syndrome [Unknown]
  - Drug dose omission [Unknown]
